FAERS Safety Report 4502010-2 (Version None)
Quarter: 2004Q4

REPORT INFORMATION
  Report Type: 
  Country: None (occurrence: None)
  Receive Date: 20041115
  Receipt Date: 20041115
  Transmission Date: 20050328
  Serious: Yes (Life-Threatening, Hospitalization)
  Sender: FDA-Public Use
  Company Number: None

PATIENT
  Age: 72 Year
  Sex: Male
  Weight: 86.6 kg

DRUGS (9)
  1. BORTEZOMIB [Suspect]
  2. OSCAL-D [Concomitant]
  3. FLUNISOLIDE [Concomitant]
  4. LORATADINE [Concomitant]
  5. INSULIN [Concomitant]
  6. NITROGLYCERIN [Concomitant]
  7. INSULIN [Concomitant]
  8. CLOPIDOGREL BISULFATE [Concomitant]
  9. PREDNISONE [Concomitant]

REACTIONS (2)
  - HYPOTENSION [None]
  - THROMBOCYTOPENIA [None]
